FAERS Safety Report 9625522 (Version 1)
Quarter: 2013Q4

REPORT INFORMATION
  Report Type: Spontaneous
  Country: US (occurrence: None)
  Receive Date: 20131015
  Receipt Date: 20131015
  Transmission Date: 20140711
  Serious: Yes (Life-Threatening, Hospitalization)
  Sender: FDA-Public Use
  Company Number: None

PATIENT
  Age: 53 Year
  Sex: Male
  Weight: 96 kg

DRUGS (4)
  1. MINOXIDIL [Suspect]
     Indication: HYPERTENSION
     Dosage: 2 TABLETS BID ORAL
     Route: 048
  2. CLONIDINE [Concomitant]
  3. CARVEDILOL [Concomitant]
  4. AMLODIPINE [Concomitant]

REACTIONS (5)
  - Dyspnoea [None]
  - Hypertension [None]
  - Insomnia [None]
  - Treatment noncompliance [None]
  - Drug dose omission [None]
